FAERS Safety Report 13178747 (Version 1)
Quarter: 2017Q1

REPORT INFORMATION
  Report Type: Spontaneous
  Country: US (occurrence: US)
  Receive Date: 20170202
  Receipt Date: 20170202
  Transmission Date: 20170428
  Serious: No
  Sender: FDA-Public Use
  Company Number: US-BAYER-2017-019211

PATIENT
  Age: 64 Year
  Sex: Male
  Weight: 102 kg

DRUGS (1)
  1. ALEVE [Suspect]
     Active Substance: NAPROXEN SODIUM
     Indication: PAIN
     Dosage: UNK
     Route: 048
     Dates: start: 20170125, end: 20170131

REACTIONS (2)
  - Abdominal pain upper [Recovered/Resolved]
  - Flatulence [Recovered/Resolved]

NARRATIVE: CASE EVENT DATE: 20170125
